FAERS Safety Report 4596532-6 (Version None)
Quarter: 2005Q1

REPORT INFORMATION
  Report Type: 
  Country: None (occurrence: None)
  Receive Date: 20050228
  Receipt Date: 20050218
  Transmission Date: 20050727
  Serious: Yes (Hospitalization)
  Sender: FDA-Public Use
  Company Number: 2005-01-2055

PATIENT
  Age: 20 Year
  Sex: Female

DRUGS (5)
  1. RINDERON A (FRADIOMYCIN SULFATE/BETAMETHASONE SODIUM OPHTHALMIC OINTME [Suspect]
     Indication: DERMATITIS ATOPIC
     Dosage: 1G/D TOP-OPHTHALMIC
     Route: 047
     Dates: start: 20040401, end: 20040406
  2. TARIVID [Concomitant]
  3. MYSER (DIFLUPREDNATE) [Concomitant]
  4. LOCOID [Concomitant]
  5. FLUMETHOLON [Concomitant]

REACTIONS (11)
  - BLEPHARITIS [None]
  - DERMATITIS CONTACT [None]
  - EYELID OEDEMA [None]
  - FACE OEDEMA [None]
  - KAPOSI'S VARICELLIFORM ERUPTION [None]
  - PYREXIA [None]
  - RASH ERYTHEMATOUS [None]
  - RASH PAPULAR [None]
  - RASH PRURITIC [None]
  - RASH PUSTULAR [None]
  - SKIN TEST POSITIVE [None]
